FAERS Safety Report 4329885-4 (Version None)
Quarter: 2004Q1

REPORT INFORMATION
  Report Type: 
  Country: None (occurrence: None)
  Receive Date: 20040329
  Receipt Date: 20040316
  Transmission Date: 20041129
  Serious: Yes (Death, Other)
  Sender: FDA-Public Use
  Company Number: 2004204025DE

PATIENT
  Age: 65 Year
  Sex: Male

DRUGS (1)
  1. HEPARIN SODIUM [Suspect]
     Indication: ISCHAEMIC STROKE
     Dosage: IV
     Route: 042

REACTIONS (6)
  - CARDIAC TAMPONADE [None]
  - DEEP VEIN THROMBOSIS [None]
  - HEPARIN-INDUCED THROMBOCYTOPENIA [None]
  - ISCHAEMIC STROKE [None]
  - PULMONARY EMBOLISM [None]
  - RENAL INFARCT [None]
